FAERS Safety Report 16154327 (Version 1)
Quarter: 2019Q2

REPORT INFORMATION
  Report Type: Spontaneous
  Country: US (occurrence: US)
  Receive Date: 20190403
  Receipt Date: 20190403
  Transmission Date: 20190711
  Serious: Yes (Other)
  Sender: FDA-Public Use
  Company Number: US-ALKEM LABORATORIES LIMITED-US-ALKEM-2019-02958

PATIENT
  Age: 32 Year
  Sex: Male

DRUGS (1)
  1. DULOXETINE HYDROCHLORIDE. [Suspect]
     Active Substance: DULOXETINE HYDROCHLORIDE
     Indication: ATTENTION DEFICIT/HYPERACTIVITY DISORDER
     Dosage: UNK
     Route: 065

REACTIONS (1)
  - Eosinophilic pneumonia [Recovered/Resolved]
